FAERS Safety Report 19632005 (Version 1)
Quarter: 2021Q3

REPORT INFORMATION
  Report Type: Spontaneous
  Country: US (occurrence: US)
  Receive Date: 20210728
  Receipt Date: 20210728
  Transmission Date: 20211014
  Serious: No
  Sender: FDA-Public Use
  Company Number: US-ROCHE-2584960

PATIENT
  Age: 65 Year
  Sex: Female

DRUGS (2)
  1. XELODA [Suspect]
     Active Substance: CAPECITABINE
     Dosage: NEXT DOSE ON /JUN/2020
     Route: 048
     Dates: start: 202006
  2. XELODA [Suspect]
     Active Substance: CAPECITABINE
     Indication: NEOPLASM MALIGNANT
     Dosage: NEXT DOSE ON /JUN/2020
     Route: 048
     Dates: start: 202004, end: 20200910

REACTIONS (5)
  - Paraesthesia [Unknown]
  - Fatigue [Unknown]
  - Madarosis [Unknown]
  - Diarrhoea [Unknown]
  - Stomatitis [Unknown]

NARRATIVE: CASE EVENT DATE: 20200406
